FAERS Safety Report 11629095 (Version 2)
Quarter: 2015Q4

REPORT INFORMATION
  Report Type: Spontaneous
  Country: JP (occurrence: JP)
  Receive Date: 20151014
  Receipt Date: 20151030
  Transmission Date: 20160304
  Serious: Yes (Other)
  Sender: FDA-Public Use
  Company Number: JP-PFIZER INC-2015135277

PATIENT
  Age: 68 Year
  Sex: Male

DRUGS (4)
  1. REBAMIPIDE [Suspect]
     Active Substance: REBAMIPIDE
     Indication: GASTROINTESTINAL DISORDER
     Dosage: 100 MG, 2X/DAY
     Route: 048
     Dates: start: 20130530
  2. OMEPRAZOLE TOWA [Suspect]
     Active Substance: OMEPRAZOLE
     Indication: GASTROINTESTINAL DISORDER
     Dosage: 10 MG, 1X/DAY
     Route: 048
     Dates: start: 20130530
  3. CELECOX [Suspect]
     Active Substance: CELECOXIB
     Indication: SCIATICA
     Dosage: 100 MG, 2X/DAY
     Route: 048
     Dates: start: 20130530
  4. LYRICA [Suspect]
     Active Substance: PREGABALIN
     Indication: SCIATICA
     Dosage: 50 MG, 2X/DAY
     Route: 048
     Dates: start: 20130530, end: 20150413

REACTIONS (6)
  - Musculoskeletal stiffness [Recovering/Resolving]
  - Vision blurred [Recovering/Resolving]
  - Hangover [Recovering/Resolving]
  - Nausea [Recovering/Resolving]
  - Feeling abnormal [Recovering/Resolving]
  - Cerebral infarction [Recovered/Resolved]

NARRATIVE: CASE EVENT DATE: 20150401
